FAERS Safety Report 13151178 (Version 1)
Quarter: 2017Q1

REPORT INFORMATION
  Report Type: Spontaneous
  Country: US (occurrence: US)
  Receive Date: 20170122
  Receipt Date: 20170122
  Transmission Date: 20170428
  Serious: Yes (Death)
  Sender: FDA-Public Use
  Company Number: None

PATIENT
  Age: 16 Year
  Sex: Female
  Weight: 69 kg

DRUGS (1)
  1. ECULIZUMAB [Suspect]
     Active Substance: ECULIZUMAB
     Indication: HAEMOGLOBINURIA
     Dosage: ?          OTHER FREQUENCY:WEEKLY;?
     Route: 040
     Dates: start: 20161119, end: 20161125

REACTIONS (13)
  - Haemolysis [None]
  - Waterhouse-Friderichsen syndrome [None]
  - Anaemia [None]
  - Cardiac arrest [None]
  - Neisseria infection [None]
  - Pulmonary oedema [None]
  - Purpura [None]
  - Disseminated intravascular coagulation [None]
  - Unresponsive to stimuli [None]
  - Back pain [None]
  - Arthralgia [None]
  - Headache [None]
  - Visual impairment [None]

NARRATIVE: CASE EVENT DATE: 20161127
